FAERS Safety Report 25271512 (Version 1)
Quarter: 2025Q2

REPORT INFORMATION
  Report Type: Spontaneous
  Country: US (occurrence: US)
  Receive Date: 20250506
  Receipt Date: 20250506
  Transmission Date: 20250717
  Serious: No
  Sender: ROCHE
  Company Number: US-ROCHE-10000274608

PATIENT
  Age: 52 Year
  Sex: Male
  Weight: 64.86 kg

DRUGS (2)
  1. HEMLIBRA [Suspect]
     Active Substance: EMICIZUMAB-KXWH
     Indication: Factor VIII deficiency
     Dosage: STRENGHT: 300MG/2ML
     Route: 058
     Dates: start: 202211
  2. HEMLIBRA [Suspect]
     Active Substance: EMICIZUMAB-KXWH
     Dosage: STRENGHT: 60MG/0.4ML
     Route: 058
     Dates: start: 202211

REACTIONS (2)
  - Haemorrhage [Unknown]
  - Off label use [Unknown]
